FAERS Safety Report 9109717 (Version 1)
Quarter: 2013Q1

REPORT INFORMATION
  Report Type: Report from Study
  Country: US (occurrence: US)
  Receive Date: 20130222
  Receipt Date: 20130222
  Transmission Date: 20140127
  Serious: Yes (Hospitalization)
  Sender: FDA-Public Use
  Company Number: US-PFIZER INC-2012267157

PATIENT
  Age: 55 Year
  Sex: Male
  Weight: 100 kg

DRUGS (4)
  1. DOXORUBICIN HCL [Suspect]
     Indication: EPITHELIOID SARCOMA
     Dosage: 171 MG, UNK
     Route: 042
     Dates: start: 20120105, end: 20120126
  2. DOXORUBICIN HCL [Suspect]
     Dosage: 60 MG/M2, UNK
     Route: 042
     Dates: start: 20120312
  3. PDGFRA [Suspect]
     Indication: EPITHELIOID SARCOMA
     Dosage: 1500 MG, UNK
     Dates: start: 20120105, end: 20120202
  4. PDGFRA [Suspect]
     Dosage: 1500 MG, UNK
     Route: 042
     Dates: start: 20120312

REACTIONS (1)
  - Staphylococcal bacteraemia [Recovered/Resolved]
